FAERS Safety Report 8983293 (Version 1)
Quarter: 2012Q4

REPORT INFORMATION
  Report Type: Report from Study
  Country: US (occurrence: US)
  Receive Date: 20121221
  Receipt Date: 20121221
  Transmission Date: 20130627
  Serious: Yes (Hospitalization)
  Sender: FDA-Public Use
  Company Number: US-ABBOTT-12P-163-1022879-00

PATIENT
  Age: 78 None
  Sex: Female

DRUGS (9)
  1. HUMIRA PEN [Suspect]
     Indication: RHEUMATOID ARTHRITIS
     Dates: start: 2003
  2. SOTALOL [Concomitant]
     Indication: CARDIAC DISORDER
  3. AMLODIPINE [Concomitant]
     Indication: HYPERTENSION
     Dosage: 5 mg daily
  4. LOSARTAN [Concomitant]
     Indication: HYPERTENSION
     Dosage: 100 mg daily
  5. METHOTREXATE [Concomitant]
     Indication: PRODUCT USED FOR UNKNOWN INDICATION
     Dosage: 2.5 mg x 4 tablets weekly
  6. MULTIVITAMIN [Concomitant]
     Indication: PRODUCT USED FOR UNKNOWN INDICATION
     Dosage: Daily
  7. FOLIC ACID [Concomitant]
     Indication: PRODUCT USED FOR UNKNOWN INDICATION
     Dosage: 1 mg daily
  8. CHONDROITIN [Concomitant]
     Indication: ARTHROPATHY
  9. GLUCOSAMINE [Concomitant]
     Indication: ARTHROPATHY

REACTIONS (5)
  - Colonic obstruction [Unknown]
  - Atrial fibrillation [Unknown]
  - Injection site erythema [Unknown]
  - Incorrect dose administered [Unknown]
  - Injection site swelling [Unknown]
